FAERS Safety Report 9505593 (Version 1)
Quarter: 2013Q1

REPORT INFORMATION
  Report Type: Spontaneous
  Country: US (occurrence: None)
  Receive Date: 20130220
  Receipt Date: 20130220
  Transmission Date: 20140127
  Serious: No
  Sender: FDA-Public Use
  Company Number: 1000041371

PATIENT
  Age: 61 Year
  Sex: Female

DRUGS (6)
  1. VIIBYRD [Suspect]
     Indication: DEPRESSION
     Dosage: 10MG (10 MG, 1 IN 1 D), ORAL
     Route: 048
     Dates: start: 20121118, end: 20121124
  2. LANTUS (INSULIN GLARGINE) (INSULIN GLARGINE) [Concomitant]
  3. VICTOZA (LIRAGLUTIDE) (LIRAGLUTIDE) [Concomitant]
  4. GLIPIZIDE (GLIPIZIDE) (GLIPIZIDE) [Concomitant]
  5. LISINOPRIL (LISINOPRIL) (LISINOPRIL) [Concomitant]
  6. ZOLPIDEM (ZOLPIDEM) (ZOLPIDEM) [Concomitant]

REACTIONS (5)
  - Headache [None]
  - Nightmare [None]
  - Nausea [None]
  - Anger [None]
  - Increased appetite [None]
